FAERS Safety Report 9026730 (Version 2)
Quarter: 2013Q1

REPORT INFORMATION
  Report Type: Spontaneous
  Country: US (occurrence: None)
  Receive Date: 20130104
  Receipt Date: 20130308
  Transmission Date: 20140127
  Serious: Yes (Other)
  Sender: FDA-Public Use
  Company Number: 003-100

PATIENT
  Age: 12 Year
  Sex: Female
  Weight: 77.11 kg

DRUGS (1)
  1. CROFAB (BTG INTERNATIONAL, INC) [Suspect]
     Indication: SNAKE BITE
     Dosage: (10 VIALS TOTAL)
     Dates: start: 201010

REACTIONS (2)
  - Platelet count decreased [None]
  - White blood cell count increased [None]
